FAERS Safety Report 14798243 (Version 1)
Quarter: 2018Q2

REPORT INFORMATION
  Report Type: Spontaneous
  Country: US (occurrence: US)
  Receive Date: 20180415
  Receipt Date: 20180415
  Transmission Date: 20180711
  Serious: Yes (Other)
  Sender: FDA-Public Use
  Company Number: None

PATIENT
  Age: 53 Year
  Sex: Female
  Weight: 121.05 kg

DRUGS (15)
  1. LINISOORIL [Concomitant]
  2. LASIX [Concomitant]
     Active Substance: FUROSEMIDE
  3. TRAMADOL. [Concomitant]
     Active Substance: TRAMADOL
  4. CINNAMON GARLIC [Concomitant]
  5. VITAMIN D [Concomitant]
     Active Substance: CHOLECALCIFEROL
  6. MONTELUKAST [Concomitant]
     Active Substance: MONTELUKAST SODIUM
  7. LIPITOR [Suspect]
     Active Substance: ATORVASTATIN CALCIUM
     Indication: BLOOD CHOLESTEROL INCREASED
     Dosage: ?          QUANTITY:1 TABLET(S);?
     Route: 048
     Dates: start: 20180217, end: 20180406
  8. VOLTAREN [Concomitant]
     Active Substance: DICLOFENAC SODIUM
  9. BIOTIN [Concomitant]
     Active Substance: BIOTIN
  10. INSULIN 70/30 [Concomitant]
     Active Substance: INSULIN HUMAN
  11. METFORMIN ER [Concomitant]
     Active Substance: METFORMIN HYDROCHLORIDE
  12. TOPIRAMATE. [Concomitant]
     Active Substance: TOPIRAMATE
  13. CORAL CALCIUM [Concomitant]
     Active Substance: DIETARY SUPPLEMENT
  14. VITAMIN E [Concomitant]
     Active Substance: .ALPHA.-TOCOPHEROL
  15. MULTI VITAMIN [Concomitant]
     Active Substance: VITAMINS

REACTIONS (6)
  - Chest pain [None]
  - Blood cholesterol increased [None]
  - Back pain [None]
  - Urinary tract infection [None]
  - Non-24-hour sleep-wake disorder [None]
  - Asthenia [None]

NARRATIVE: CASE EVENT DATE: 20180327
